FAERS Safety Report 6261436-X (Version None)
Quarter: 2009Q3

REPORT INFORMATION
  Report Type: 
  Country: None (occurrence: None)
  Receive Date: 20090709
  Receipt Date: 20090707
  Transmission Date: 20100115
  Serious: Yes (Death, Other)
  Sender: FDA-Public Use
  Company Number: JP-ELI_LILLY_AND_COMPANY-JP200906003823

PATIENT
  Sex: Male
  Weight: 66 kg

DRUGS (5)
  1. GEMZAR [Suspect]
     Indication: PANCREATIC CARCINOMA STAGE III
     Dosage: 1600 MG, OTHER
     Route: 042
     Dates: start: 20080609, end: 20081210
  2. GEMZAR [Suspect]
     Dosage: 1600 MG, OTHER
     Route: 042
     Dates: start: 20081211, end: 20090409
  3. TS 1 /JPN/ [Concomitant]
     Indication: PANCREATIC CARCINOMA STAGE III
     Dosage: 60 MG, 2/D
     Route: 048
     Dates: start: 20080317, end: 20080526
  4. TS 1 /JPN/ [Concomitant]
     Dosage: 50 MG, 2/D
     Route: 048
     Dates: start: 20081211, end: 20090409
  5. ZOMETA [Concomitant]
     Indication: METASTASES TO BONE
     Dosage: 4 MG, DAILY (1/D)
     Route: 042
     Dates: start: 20081218, end: 20090508

REACTIONS (3)
  - GASTROINTESTINAL PERFORATION [None]
  - INTERSTITIAL LUNG DISEASE [None]
  - MALIGNANT NEOPLASM PROGRESSION [None]
